FAERS Safety Report 21097073 (Version 1)
Quarter: 2022Q3

REPORT INFORMATION
  Report Type: Spontaneous
  Country: US (occurrence: US)
  Receive Date: 20220719
  Receipt Date: 20220719
  Transmission Date: 20221027
  Serious: Yes (Hospitalization)
  Sender: FDA-Public Use
  Company Number: US-BRISTOL-MYERS SQUIBB COMPANY-BMS-2022-039005

PATIENT
  Age: 51 Year
  Sex: Female
  Weight: 93.44 kg

DRUGS (30)
  1. SPRYCEL [Suspect]
     Active Substance: DASATINIB
     Indication: Chronic myeloid leukaemia
     Dosage: 100MG
     Route: 048
  2. OXYCODONE [Suspect]
     Active Substance: OXYCODONE
     Indication: Product used for unknown indication
  3. AMOXICILLIN [Concomitant]
     Active Substance: AMOXICILLIN
  4. CYANOCOBALAMIN [Concomitant]
     Active Substance: CYANOCOBALAMIN
     Route: 065
  5. BENADRYL N [Concomitant]
  6. EPINEPHRINE [Concomitant]
     Active Substance: EPINEPHRINE
  7. FERROUS SULFATE [Concomitant]
     Active Substance: FERROUS SULFATE
  8. FLUCONAZOLE [Concomitant]
     Active Substance: FLUCONAZOLE
  9. HYDROCHLOROTHIAZIDE [Concomitant]
     Active Substance: HYDROCHLOROTHIAZIDE
  10. LISINOPRIL [Concomitant]
     Active Substance: LISINOPRIL
  11. LIDOCAINE [Concomitant]
     Active Substance: LIDOCAINE
  12. INSULIN BEEF [Concomitant]
     Active Substance: INSULIN BEEF
  13. HYDROCORTISONE [Concomitant]
     Active Substance: HYDROCORTISONE
  14. ARMODAFINIL [Concomitant]
     Active Substance: ARMODAFINIL
  15. INSULIN NOS [Concomitant]
     Active Substance: INSULIN NOS
  16. LEVOTHYROXINE [Concomitant]
     Active Substance: LEVOTHYROXINE
  17. LORATADINE [Concomitant]
     Active Substance: LORATADINE
  18. METFORMIN [Concomitant]
     Active Substance: METFORMIN HYDROCHLORIDE
  19. VITAMINS [Concomitant]
     Active Substance: VITAMINS
  20. OXYCODONE [Concomitant]
     Active Substance: OXYCODONE
  21. PREGABALIN [Concomitant]
     Active Substance: PREGABALIN
  22. SODIUM CHLORIDE [Concomitant]
     Active Substance: SODIUM CHLORIDE
  23. TIZANIDINE [Concomitant]
     Active Substance: TIZANIDINE
  24. VILAZODONE [Concomitant]
     Active Substance: VILAZODONE
  25. ASPIRIN [Concomitant]
     Active Substance: ASPIRIN
  26. BACLOFEN [Concomitant]
     Active Substance: BACLOFEN
  27. CARVEDILOL [Concomitant]
     Active Substance: CARVEDILOL
  28. CIPROFLOXACIN [Concomitant]
     Active Substance: CIPROFLOXACIN
  29. COREG [Concomitant]
     Active Substance: CARVEDILOL
  30. CRANBERRY NS [Concomitant]

REACTIONS (2)
  - Overdose [Unknown]
  - Teeth brittle [Unknown]

NARRATIVE: CASE EVENT DATE: 20220215
